FAERS Safety Report 7810468-6 (Version None)
Quarter: 2011Q4

REPORT INFORMATION
  Report Type: 
  Country: None (occurrence: None)
  Receive Date: 20111012
  Receipt Date: 20110927
  Transmission Date: 20120403
  Serious: Yes (Other)
  Sender: FDA-Public Use
  Company Number: US-ROCHE-1001665

PATIENT
  Sex: Male

DRUGS (1)
  1. ACCUTANE [Suspect]
     Indication: PRODUCT USED FOR UNKNOWN INDICATION
     Dates: start: 19950101, end: 19960101

REACTIONS (2)
  - ANXIETY [None]
  - CROHN'S DISEASE [None]
